FAERS Safety Report 21883746 (Version 4)
Quarter: 2023Q2

REPORT INFORMATION
  Report Type: Spontaneous
  Country: US (occurrence: US)
  Receive Date: 20230119
  Receipt Date: 20230401
  Transmission Date: 20230721
  Serious: Yes (Other)
  Sender: FDA-Public Use
  Company Number: US-MALLINCKRODT-T202300376

PATIENT
  Sex: Male

DRUGS (2)
  1. TERLIVAZ [Suspect]
     Active Substance: TERLIPRESSIN
     Indication: Product used for unknown indication
     Dosage: UNK, RESTARTED
  2. TERLIVAZ [Suspect]
     Active Substance: TERLIPRESSIN
     Dosage: UNKNOWN

REACTIONS (1)
  - Blood pressure systolic increased [Not Recovered/Not Resolved]
